FAERS Safety Report 4564035-0 (Version None)
Quarter: 2005Q1

REPORT INFORMATION
  Report Type: 
  Country: None (occurrence: None)
  Receive Date: 20050128
  Receipt Date: 20040611
  Transmission Date: 20050727
  Serious: No
  Sender: FDA-Public Use
  Company Number: US-BRISTOL-MYERS SQUIBB COMPANY-12612362

PATIENT
  Age: 23 Year
  Sex: Female
  Weight: 54 kg

DRUGS (1)
  1. CEFZIL [Suspect]
     Indication: PHARYNGITIS
     Dates: start: 20040101

REACTIONS (2)
  - PRURITUS [None]
  - RASH GENERALISED [None]
